FAERS Safety Report 6621384-X (Version None)
Quarter: 2010Q1

REPORT INFORMATION
  Report Type: 
  Country: None (occurrence: None)
  Receive Date: 20100309
  Receipt Date: 20100209
  Transmission Date: 20100710
  Serious: No
  Sender: FDA-Public Use
  Company Number: US-BIOGENIDEC-2010BI004509

PATIENT
  Age: 47 Year
  Sex: Female

DRUGS (1)
  1. AVONEX [Suspect]
     Indication: MULTIPLE SCLEROSIS
     Route: 030
     Dates: start: 20050101

REACTIONS (6)
  - CHILLS [None]
  - GAIT DISTURBANCE [None]
  - HYPOPHAGIA [None]
  - INJECTION SITE HAEMATOMA [None]
  - NAUSEA [None]
  - PAIN IN EXTREMITY [None]
